FAERS Safety Report 4908607-X (Version None)
Quarter: 2006Q1

REPORT INFORMATION
  Report Type: 
  Country: None (occurrence: None)
  Receive Date: 20060210
  Receipt Date: 20050916
  Transmission Date: 20060701
  Serious: No
  Sender: FDA-Public Use
  Company Number: US-GLAXOSMITHKLINE-A0574518A

PATIENT
  Age: 51 Year
  Sex: Male

DRUGS (7)
  1. PAXIL [Suspect]
     Indication: INSOMNIA
     Dosage: 25MG PER DAY
     Route: 048
  2. AMBIEN [Concomitant]
  3. PROTONIX [Concomitant]
  4. PRILOSEC [Concomitant]
  5. INDERAL [Concomitant]
  6. PHENERGAN [Concomitant]
  7. ATIVAN [Concomitant]

REACTIONS (1)
  - DRUG INEFFECTIVE [None]
